FAERS Safety Report 8799402 (Version 3)
Quarter: 2012Q4

REPORT INFORMATION
  Report Type: 
  Country: US (occurrence: US)
  Receive Date: 20120920
  Receipt Date: 20121031
  Transmission Date: 20130627
  Serious: Yes (Hospitalization, Other)
  Sender: FDA-Public Use
  Company Number: US-BAXTER-2012BAX016881

PATIENT
  Sex: Male

DRUGS (3)
  1. DIANEAL LOW CALCIUM [Suspect]
     Indication: PERITONEAL DIALYSIS
     Route: 033
  2. DIANEAL LOW CALCIUM [Suspect]
     Indication: PERITONEAL DIALYSIS
     Route: 033
  3. EXTRANEAL [Suspect]
     Indication: PERITONEAL DIALYSIS
     Route: 033

REACTIONS (11)
  - Cerebrovascular accident [Recovering/Resolving]
  - Mental impairment [Unknown]
  - Gastric infection [Recovering/Resolving]
  - Nervousness [Unknown]
  - Confusional state [Recovering/Resolving]
  - Memory impairment [Unknown]
  - Pneumoperitoneum [Unknown]
  - Muscular weakness [Recovering/Resolving]
  - Protein total decreased [Recovering/Resolving]
  - Oedema peripheral [Recovering/Resolving]
  - Pain [Unknown]
